FAERS Safety Report 24588138 (Version 2)
Quarter: 2024Q4

REPORT INFORMATION
  Report Type: Spontaneous
  Country: US (occurrence: US)
  Receive Date: 20241107
  Receipt Date: 20241113
  Transmission Date: 20250115
  Serious: Yes (Other)
  Sender: EISAI
  Company Number: US-Eisai-EC-2024-177588

PATIENT
  Age: 77 Year
  Sex: Female
  Weight: 72.57 kg

DRUGS (3)
  1. LEQEMBI [Suspect]
     Active Substance: LECANEMAB-IRMB
     Indication: Dementia Alzheimer^s type
     Route: 042
     Dates: start: 20240501, end: 202410
  2. LEQEMBI [Suspect]
     Active Substance: LECANEMAB-IRMB
     Dosage: 13TH INFUSION
     Route: 042
     Dates: start: 20241016, end: 20241016
  3. ATORVASTATIN [Concomitant]
     Active Substance: ATORVASTATIN
     Indication: Product used for unknown indication
     Dosage: DOSE AND FREQUENCY UNKNOWN

REACTIONS (1)
  - Amyloid related imaging abnormality-microhaemorrhages and haemosiderin deposits [Not Recovered/Not Resolved]

NARRATIVE: CASE EVENT DATE: 20241021
